FAERS Safety Report 8054949-1 (Version None)
Quarter: 2012Q1

REPORT INFORMATION
  Report Type: 
  Country: None (occurrence: None)
  Receive Date: 20120119
  Receipt Date: 20120106
  Transmission Date: 20120608
  Serious: Yes (Hospitalization, Other)
  Sender: FDA-Public Use
  Company Number: CA-ELI_LILLY_AND_COMPANY-CA201111002700

PATIENT
  Sex: Male

DRUGS (8)
  1. CONCERTA [Concomitant]
     Dosage: 27 MG, EACH MORNING
  2. STRATTERA [Suspect]
     Dosage: 1 DF, QD
  3. ATOMOXETINE HYDROCHLORIDE [Concomitant]
     Indication: ATTENTION DEFICIT/HYPERACTIVITY DISORDER
     Dosage: 60 MG, QD
     Dates: start: 20110822, end: 20110825
  4. STRATTERA [Suspect]
     Dosage: 60 MG, QD
     Dates: start: 20110917, end: 20110923
  5. STRATTERA [Suspect]
     Dosage: 60 MG, QD
     Dates: end: 20110821
  6. STRATTERA [Suspect]
     Indication: ATTENTION DEFICIT/HYPERACTIVITY DISORDER
     Dosage: 10 MG, QD
     Dates: start: 20080119
  7. ROCALTROL [Concomitant]
     Indication: HYPOPARATHYROIDISM
     Dosage: UNK
     Dates: start: 20090303, end: 20110923
  8. CONCERTA [Concomitant]
     Indication: ATTENTION DEFICIT/HYPERACTIVITY DISORDER
     Dosage: 36 MG, EACH MORNING

REACTIONS (9)
  - HYPERTENSIVE CRISIS [None]
  - BLOOD CALCIUM INCREASED [None]
  - BLOOD PARATHYROID HORMONE DECREASED [None]
  - BLOOD URIC ACID INCREASED [None]
  - PALLOR [None]
  - BLOOD CREATININE INCREASED [None]
  - HEADACHE [None]
  - NAUSEA [None]
  - VOMITING [None]
